FAERS Safety Report 5721520-3 (Version None)
Quarter: 2008Q2

REPORT INFORMATION
  Report Type: 
  Country: None (occurrence: None)
  Receive Date: 20080428
  Receipt Date: 20080428
  Transmission Date: 20081010
  Serious: No
  Sender: FDA-Public Use
  Company Number: None

PATIENT
  Age: 51 Year
  Sex: Female
  Weight: 88.4514 kg

DRUGS (2)
  1. DIGITEK   .25 MG  ACTAVIS UDL LAB. [Suspect]
     Indication: CARDIAC FAILURE CONGESTIVE
     Dosage: .25 MG ONCE A DAY PO
     Route: 048
     Dates: start: 20080401, end: 20080426
  2. DIGITEK   .25 MG  ACTAVIS UDL LAB. [Suspect]
     Indication: CARDIOMYOPATHY
     Dosage: .25 MG ONCE A DAY PO
     Route: 048
     Dates: start: 20080401, end: 20080426

REACTIONS (3)
  - HEART RATE INCREASED [None]
  - MUSCLE SPASMS [None]
  - NAUSEA [None]
